FAERS Safety Report 9076267 (Version 1)
Quarter: 2013Q1

REPORT INFORMATION
  Report Type: Report from Study
  Country: US (occurrence: US)
  Receive Date: 20130129
  Receipt Date: 20130129
  Transmission Date: 20140127
  Serious: No
  Sender: FDA-Public Use
  Company Number: US-ABBOTT-12P-163-0949225-00

PATIENT
  Age: 43 Year
  Sex: Female

DRUGS (5)
  1. HUMIRA 40 MG/0.8 ML PEN [Suspect]
     Indication: CROHN^S DISEASE
     Dates: start: 201009
  2. LIALDA [Concomitant]
     Indication: CROHN^S DISEASE
  3. PROTONIX [Concomitant]
     Indication: GASTROOESOPHAGEAL REFLUX DISEASE
     Dosage: 20MG DAILY
  4. VESICARE [Concomitant]
     Indication: INCONTINENCE
     Dosage: DAILY
  5. UNKNOWN MEDICATION FOR DEPRESSION [Concomitant]
     Indication: DEPRESSION

REACTIONS (2)
  - Nasal congestion [Recovering/Resolving]
  - Sinusitis [Unknown]
